FAERS Safety Report 24689721 (Version 1)
Quarter: 2024Q4

REPORT INFORMATION
  Report Type: Spontaneous
  Country: US (occurrence: US)
  Receive Date: 20241203
  Receipt Date: 20241203
  Transmission Date: 20250114
  Serious: Yes (Other)
  Sender: APOTEX
  Company Number: US-APOTEX-2024AP019109

PATIENT
  Sex: Male

DRUGS (8)
  1. LENALIDOMIDE [Suspect]
     Active Substance: LENALIDOMIDE
     Indication: Rosai-Dorfman syndrome
     Dosage: 15 MILLIGRAM, QD FOR 3 WEEKS FOLLOWED BY 1 WEEK OFF THERAPY
     Route: 065
  2. SIROLIMUS [Suspect]
     Active Substance: SIROLIMUS
     Indication: Rosai-Dorfman syndrome
     Dosage: 4 MILLIGRAM, QD
     Route: 065
  3. SIROLIMUS [Suspect]
     Active Substance: SIROLIMUS
     Dosage: 6 MILLIGRAM
     Route: 048
  4. RITUXIMAB [Concomitant]
     Active Substance: RITUXIMAB
     Indication: Rosai-Dorfman syndrome
     Dosage: 500 MILLIGRAM/SQ. METER FOR 4 WEEKS, THEN EVERY 2 MONTHS AND SUBSEQUENTLY EVERY 3 MONTHS
     Route: 065
  5. DEXAMETHASONE [Concomitant]
     Active Substance: DEXAMETHASONE
     Indication: Rosai-Dorfman syndrome
     Dosage: 4 MILLIGRAM, Q.WK. (FROM MONDAY TO FRIDAY)
     Route: 065
  6. PREDNISONE [Concomitant]
     Active Substance: PREDNISONE
     Indication: Hypoxia
     Dosage: 40 MILLIGRAM, QD
     Route: 048
  7. PREDNISONE [Concomitant]
     Active Substance: PREDNISONE
     Indication: Respiratory distress
     Dosage: 30 MILLIGRAM, QD
     Route: 065
  8. PREDNISONE [Concomitant]
     Active Substance: PREDNISONE
     Dosage: 1 MILLIGRAM, QD
     Route: 065

REACTIONS (6)
  - Histoplasmosis disseminated [Unknown]
  - Cytopenia [Recovering/Resolving]
  - Pancytopenia [Recovered/Resolved]
  - Neutropenia [Unknown]
  - Cough [Unknown]
  - Dyspnoea [Recovered/Resolved]
